FAERS Safety Report 6895981-0 (Version None)
Quarter: 2010Q3

REPORT INFORMATION
  Report Type: 
  Country: None (occurrence: None)
  Receive Date: 20100802
  Receipt Date: 20100722
  Transmission Date: 20110219
  Serious: Yes (Other)
  Sender: FDA-Public Use
  Company Number: JP-ASTRAZENECA-2010SE32918

PATIENT
  Age: 41 Year
  Sex: Male
  Weight: 127 kg

DRUGS (1)
  1. DIPRIVAN [Suspect]
     Indication: SEDATION
     Dosage: 270 MG/H
     Route: 042

REACTIONS (1)
  - DELAYED RECOVERY FROM ANAESTHESIA [None]
